FAERS Safety Report 4585788-1 (Version None)
Quarter: 2005Q1

REPORT INFORMATION
  Report Type: 
  Country: None (occurrence: None)
  Receive Date: 20050215
  Receipt Date: 20040720
  Transmission Date: 20050727
  Serious: Yes (Hospitalization, Disabling, Other)
  Sender: FDA-Public Use
  Company Number: 2004-02385

PATIENT
  Age: 2 Year
  Sex: Male

DRUGS (8)
  1. IPOL [Suspect]
     Indication: IMMUNISATION
     Dates: start: 19980115
  2. DIPHTHERIA, TETANUS AND PERTUSSIS VACCINE [Suspect]
     Indication: IMMUNISATION
     Dosage: I.M.
     Route: 030
     Dates: start: 19980914
  3. HIBVAX [Suspect]
     Indication: IMMUNISATION
     Dosage: I.M.
     Route: 030
     Dates: start: 19980914
  4. HEPATITIS B VACCINE [Suspect]
     Indication: IMMUNISATION
     Dosage: I.M.
     Route: 030
     Dates: start: 19980310
  5. MMR/MEASLES, MUMPS AND RUBELLA VACCINE [Suspect]
     Indication: IMMUNISATION
     Dosage: S.C.
     Route: 058
     Dates: start: 19980914
  6. POLIOVIRUS VACCINE LIVE ORAL [Suspect]
     Indication: IMMUNISATION
     Dates: start: 19980914
  7. VARICELLA VIRUS VACCINE LIVE [Suspect]
     Indication: IMMUNISATION
     Dosage: S.C.
     Route: 058
     Dates: start: 19981208
  8. TUBERCULIN PPD [Suspect]
     Indication: TUBERCULIN TEST
     Dates: start: 19981022

REACTIONS (21)
  - ABNORMAL BEHAVIOUR [None]
  - AGGRESSION [None]
  - AGITATION [None]
  - AUTISM [None]
  - COMMUNICATION DISORDER [None]
  - DEVELOPMENTAL DELAY [None]
  - DRUG EXPOSURE DURING PREGNANCY [None]
  - EAR INFECTION [None]
  - EATING DISORDER [None]
  - HEARING IMPAIRED [None]
  - HYPERPYREXIA [None]
  - INCONTINENCE [None]
  - MASTICATION DISORDER [None]
  - METAL POISONING [None]
  - MOOD ALTERED [None]
  - NEUROTOXICITY [None]
  - PSYCHOMOTOR HYPERACTIVITY [None]
  - SELF INJURIOUS BEHAVIOUR [None]
  - SLEEP DISORDER [None]
  - SPEECH DISORDER DEVELOPMENTAL [None]
  - UPPER RESPIRATORY TRACT INFECTION [None]
